FAERS Safety Report 11623455 (Version 1)
Quarter: 2015Q4

REPORT INFORMATION
  Report Type: Spontaneous
  Country: US (occurrence: US)
  Receive Date: 20151013
  Receipt Date: 20151013
  Transmission Date: 20160304
  Serious: No
  Sender: FDA-Public Use
  Company Number: US-WEST-WARD PHARMACEUTICALS CORP.-WW-153712

PATIENT
  Sex: Male

DRUGS (1)
  1. LEUCOVORIN CALCIUM FOR INJECTION (LEUCOVORIN CALCIUM) (LEUCOVORIN CALCIUM) [Suspect]
     Active Substance: LEUCOVORIN CALCIUM
     Indication: OESOPHAGEAL CARCINOMA

REACTIONS (2)
  - Malaise [Unknown]
  - No therapeutic response [Unknown]
